FAERS Safety Report 5966207-7 (Version None)
Quarter: 2008Q4

REPORT INFORMATION
  Report Type: 
  Country: None (occurrence: None)
  Receive Date: 20081125
  Receipt Date: 20081113
  Transmission Date: 20090506
  Serious: Yes (Other)
  Sender: FDA-Public Use
  Company Number: IT-ELI_LILLY_AND_COMPANY-IT200811004413

PATIENT
  Age: 66 Year
  Sex: Male

DRUGS (1)
  1. ZYPREXA [Suspect]
     Dates: start: 20040101

REACTIONS (11)
  - ACTIVITIES OF DAILY LIVING IMPAIRED [None]
  - ASTHENIA [None]
  - BEDRIDDEN [None]
  - BLINDNESS [None]
  - DEAFNESS [None]
  - MALAISE [None]
  - PAIN [None]
  - PANIC DISORDER [None]
  - PHOBIA [None]
  - PNEUMONIA [None]
  - WEIGHT INCREASED [None]
